FAERS Safety Report 16724544 (Version 1)
Quarter: 2019Q3

REPORT INFORMATION
  Report Type: Spontaneous
  Country: LB (occurrence: LB)
  Receive Date: 20190821
  Receipt Date: 20190821
  Transmission Date: 20191005
  Serious: Yes (Death, Other)
  Sender: FDA-Public Use
  Company Number: LB-JNJFOC-20190808807

PATIENT
  Age: 12 Year
  Sex: Male

DRUGS (6)
  1. THIOGUANINE [Suspect]
     Active Substance: THIOGUANINE
     Indication: GLIOBLASTOMA MULTIFORME
     Route: 065
  2. L-ASPARAGINASE [Suspect]
     Active Substance: ASPARAGINASE
     Indication: GLIOBLASTOMA MULTIFORME
     Route: 065
  3. DEXAMETHASONE. [Suspect]
     Active Substance: DEXAMETHASONE
     Indication: GLIOBLASTOMA MULTIFORME
     Route: 065
  4. CYTARABINE. [Suspect]
     Active Substance: CYTARABINE
     Indication: GLIOBLASTOMA MULTIFORME
     Route: 065
  5. CAELYX [Suspect]
     Active Substance: DOXORUBICIN HYDROCHLORIDE
     Indication: GLIOBLASTOMA MULTIFORME
     Route: 065
  6. VINCRISTINE [Suspect]
     Active Substance: VINCRISTINE
     Indication: GLIOBLASTOMA MULTIFORME
     Route: 065

REACTIONS (6)
  - Cachexia [Unknown]
  - Seizure [Unknown]
  - Bronchopulmonary aspergillosis [Fatal]
  - Febrile neutropenia [Unknown]
  - Off label use [Unknown]
  - Product use in unapproved indication [Unknown]
